FAERS Safety Report 16426025 (Version 2)
Quarter: 2019Q2

REPORT INFORMATION
  Report Type: Report from Study
  Country: US (occurrence: US)
  Receive Date: 20190613
  Receipt Date: 20190613
  Transmission Date: 20190711
  Serious: Yes (Hospitalization)
  Sender: FDA-Public Use
  Company Number: US-EISAI MEDICAL RESEARCH-EC-2019-051492

PATIENT
  Age: 74 Year
  Sex: Female
  Weight: 59 kg

DRUGS (23)
  1. LANTUS SOLOSTAR [Concomitant]
     Active Substance: INSULIN GLARGINE
  2. MAGNESIUM [Concomitant]
     Active Substance: MAGNESIUM
  3. SODIUM POLYSTYRENE [Concomitant]
     Active Substance: SODIUM POLYSTYRENE SULFONATE
  4. STOOL SOFTENER (DOCUSATE) [Concomitant]
     Active Substance: DOCUSATE
  5. LENVIMA [Suspect]
     Active Substance: LENVATINIB
     Route: 048
     Dates: start: 201904, end: 201905
  6. AMLODIPINE BESYLATE. [Concomitant]
     Active Substance: AMLODIPINE BESYLATE
  7. SODIUM BICARBONATE. [Concomitant]
     Active Substance: SODIUM BICARBONATE
  8. LENVIMA [Suspect]
     Active Substance: LENVATINIB
     Dosage: 8 MG AND 4 MG ALTERNATINGLY DAILY
     Route: 048
     Dates: start: 201905
  9. HUMALOG KWIKPEN [Concomitant]
     Active Substance: INSULIN LISPRO
  10. LENVIMA [Suspect]
     Active Substance: LENVATINIB
     Indication: RENAL CANCER
     Route: 048
     Dates: start: 20190124, end: 20190202
  11. LENVIMA [Suspect]
     Active Substance: LENVATINIB
     Route: 048
     Dates: start: 2019, end: 201904
  12. AFINITOR [Suspect]
     Active Substance: EVEROLIMUS
     Indication: PRODUCT USED FOR UNKNOWN INDICATION
     Dosage: UNKNOWN
     Route: 048
     Dates: start: 20190124, end: 20190202
  13. LEVOTHYROXINE SODIUM. [Concomitant]
     Active Substance: LEVOTHYROXINE SODIUM
  14. VELTASSA [Concomitant]
     Active Substance: PATIROMER
  15. SODIUM CHLORIDE. [Concomitant]
     Active Substance: SODIUM CHLORIDE
  16. ATORVASTATIN CALCIUM. [Concomitant]
     Active Substance: ATORVASTATIN CALCIUM
  17. IRON [Concomitant]
     Active Substance: IRON
  18. HYDROCODONE-ACETAMINOP [Concomitant]
  19. SULFAMETHOXAZOLE-TRIME [Concomitant]
  20. AFINITOR [Suspect]
     Active Substance: EVEROLIMUS
     Dosage: UNKNOWN
     Route: 048
     Dates: start: 2019
  21. LISINOPRIL. [Concomitant]
     Active Substance: LISINOPRIL
  22. CALCITRIOL. [Concomitant]
     Active Substance: CALCITRIOL
  23. ALLOPURINOL. [Concomitant]
     Active Substance: ALLOPURINOL

REACTIONS (16)
  - Asthenia [Unknown]
  - Decreased appetite [Unknown]
  - Gait disturbance [Unknown]
  - Fatigue [Unknown]
  - Haematocrit decreased [Recovering/Resolving]
  - Dizziness [Recovering/Resolving]
  - Dehydration [Recovered/Resolved]
  - Malignant neoplasm progression [Unknown]
  - Vomiting [Unknown]
  - Fall [Recovered/Resolved]
  - Constipation [Unknown]
  - Nausea [Not Recovered/Not Resolved]
  - Diarrhoea [Not Recovered/Not Resolved]
  - Acute kidney injury [Recovering/Resolving]
  - Blood pressure increased [Unknown]
  - Sensory loss [Unknown]

NARRATIVE: CASE EVENT DATE: 2019
